FAERS Safety Report 25411995 (Version 1)
Quarter: 2025Q2

REPORT INFORMATION
  Report Type: Report from Study
  Country: US (occurrence: US)
  Receive Date: 20250609
  Receipt Date: 20250609
  Transmission Date: 20250717
  Serious: No
  Sender: Unknown Manufacturer
  Company Number: US-MIRUM PHARMACEUTICALS, INC.-US-MIR-25-00324

PATIENT

DRUGS (1)
  1. LIVMARLI [Suspect]
     Active Substance: MARALIXIBAT CHLORIDE
     Indication: Alagille syndrome
     Dosage: 0.3 MILLILITER, QD
     Route: 065
     Dates: start: 202410

REACTIONS (7)
  - Transplant evaluation [Unknown]
  - Hepatic enzyme increased [Unknown]
  - Pruritus [Unknown]
  - Insomnia [Unknown]
  - Scratch [Unknown]
  - Haemorrhage [Unknown]
  - Blood bilirubin increased [Unknown]

NARRATIVE: CASE EVENT DATE: 20250101
